FAERS Safety Report 19174986 (Version 1)
Quarter: 2021Q2

REPORT INFORMATION
  Report Type: Spontaneous
  Country: US (occurrence: US)
  Receive Date: 20210424
  Receipt Date: 20210424
  Transmission Date: 20210717
  Serious: No
  Sender: FDA-Public Use
  Company Number: 2020SGN03901

PATIENT
  Sex: Female

DRUGS (1)
  1. TUKYSA [Suspect]
     Active Substance: TUCATINIB
     Indication: BREAST CANCER FEMALE
     Dosage: 150 MG
     Route: 065
     Dates: start: 202007

REACTIONS (6)
  - Fatigue [Unknown]
  - Disease progression [Unknown]
  - Diarrhoea [Unknown]
  - Flatulence [Unknown]
  - Abdominal distension [Unknown]
  - Muscle spasms [Unknown]
